FAERS Safety Report 8482533-4 (Version None)
Quarter: 2012Q3

REPORT INFORMATION
  Report Type: 
  Country: None (occurrence: None)
  Receive Date: 20120702
  Receipt Date: 20120622
  Transmission Date: 20120928
  Serious: Yes (Hospitalization)
  Sender: FDA-Public Use
  Company Number: FR-BRISTOL-MYERS SQUIBB COMPANY-16587339

PATIENT
  Age: 58 Year
  Sex: Male

DRUGS (17)
  1. CETUXIMAB [Suspect]
     Indication: HEAD AND NECK CANCER
     Dosage: X1 CYCLE
     Route: 042
     Dates: start: 20101102, end: 20101220
  2. ALPRAZOLAM [Concomitant]
     Route: 048
  3. OXAZEPAM [Concomitant]
     Route: 048
  4. MORPHINE SULFATE [Concomitant]
     Indication: PAIN
     Dosage: 1DF=10 UNITS NOS
     Route: 048
  5. ACETAMINOPHEN [Concomitant]
     Indication: MUCOSAL INFLAMMATION
  6. FLUOROURACIL [Suspect]
     Indication: HEAD AND NECK CANCER
     Dosage: FIRST 5 DAYS OF 21 DAY CYCLE.
     Route: 042
     Dates: start: 20100825, end: 20101011
  7. MORPHINE SULFATE [Concomitant]
     Indication: PAIN
     Dosage: 1DF=8 UNITS NOS
     Dates: start: 20110201, end: 20110219
  8. PANTOPRAZOLE SODIUM [Concomitant]
     Route: 048
  9. ACETAMINOPHEN [Concomitant]
     Indication: DYSPHAGIA
  10. ACETAMINOPHEN [Concomitant]
     Indication: PAIN
  11. MORPHINE SULFATE [Concomitant]
     Indication: DYSPHAGIA
     Dosage: 1DF=8 UNITS NOS
     Dates: start: 20110201, end: 20110219
  12. SULFARLEM [Concomitant]
     Dosage: 105MG
     Route: 048
  13. POTASSIUM CHLORIDE [Concomitant]
     Indication: HYPOKALAEMIA
  14. MORPHINE SULFATE [Concomitant]
     Indication: MUCOSAL INFLAMMATION
     Dosage: 1DF=8 UNITS NOS
     Dates: start: 20110201, end: 20110219
  15. CISPLATIN [Suspect]
     Indication: HEAD AND NECK CANCER
     Dosage: FIRST DAY OF 21 DAY CYCLE
     Route: 042
     Dates: start: 20100825, end: 20101007
  16. DOCETAXEL [Suspect]
     Indication: HEAD AND NECK CANCER
     Dosage: FIRST DAY OF 21 DAY CYCLE
     Route: 042
     Dates: start: 20100825, end: 20101007
  17. TERCIAN [Concomitant]
     Route: 048

REACTIONS (4)
  - DIARRHOEA [None]
  - DYSPHAGIA [None]
  - DEVICE RELATED INFECTION [None]
  - MUCOSAL INFLAMMATION [None]
